FAERS Safety Report 16078281 (Version 1)
Quarter: 2019Q2

REPORT INFORMATION
  Report Type: Spontaneous
  Country: US (occurrence: US)
  Receive Date: 20190315
  Receipt Date: 20190315
  Transmission Date: 20190711
  Serious: Yes (Hospitalization)
  Sender: FDA-Public Use
  Company Number: None

PATIENT
  Age: 79 Year
  Sex: Female
  Weight: 60.75 kg

DRUGS (4)
  1. TIMOLOL. [Concomitant]
     Active Substance: TIMOLOL
  2. SUCRAID [Suspect]
     Active Substance: SACROSIDASE
     Indication: SUCRASE-ISOMALTASE DEFICIENCY
     Route: 048
     Dates: end: 20190314
  3. ACETOMINOPHEN [Concomitant]
     Active Substance: ACETAMINOPHEN
  4. PREMARIN CREAM [Concomitant]

REACTIONS (4)
  - Pulse absent [None]
  - Constipation [None]
  - Mydriasis [None]
  - Syncope [None]

NARRATIVE: CASE EVENT DATE: 20190314
